FAERS Safety Report 4352005-7 (Version None)
Quarter: 2004Q2

REPORT INFORMATION
  Report Type: 
  Country: None (occurrence: None)
  Receive Date: 20040503
  Receipt Date: 20040428
  Transmission Date: 20050107
  Serious: Yes (Hospitalization)
  Sender: FDA-Public Use
  Company Number: US-AMGEN-US074491

PATIENT
  Age: 56 Year
  Sex: Male

DRUGS (2)
  1. ENBREL [Suspect]
     Indication: RHEUMATOID ARTHRITIS
     Route: 058
     Dates: start: 20040301, end: 20040427
  2. PREDNISONE [Concomitant]

REACTIONS (7)
  - CUTANEOUS LUPUS ERYTHEMATOSUS [None]
  - DERMATITIS EXFOLIATIVE [None]
  - DESQUAMATION MOUTH [None]
  - MYALGIA [None]
  - PYREXIA [None]
  - STEVENS-JOHNSON SYNDROME [None]
  - TOXIC EPIDERMAL NECROLYSIS [None]
